FAERS Safety Report 7086875-9 (Version None)
Quarter: 2010Q4

REPORT INFORMATION
  Report Type: 
  Country: None (occurrence: None)
  Receive Date: 20101105
  Receipt Date: 20101021
  Transmission Date: 20110411
  Serious: Yes (Hospitalization)
  Sender: FDA-Public Use
  Company Number: DE-ACTELION-A-US2010-41033

PATIENT

DRUGS (2)
  1. ILOPROST INHALATION ROW [Suspect]
     Dosage: 5 UG, QD
     Route: 055
  2. ILOPROST INHALATION ROW [Suspect]
     Dosage: 2.5 UG, QD
     Route: 055

REACTIONS (4)
  - COUGH [None]
  - HEADACHE [None]
  - SODIUM RETENTION [None]
  - THROAT IRRITATION [None]
